FAERS Safety Report 8288114-X (Version None)
Quarter: 2012Q2

REPORT INFORMATION
  Report Type: 
  Country: None (occurrence: None)
  Receive Date: 20120416
  Receipt Date: 20120411
  Transmission Date: 20120825
  Serious: No
  Sender: FDA-Public Use
  Company Number: US-BAYER-2012-036103

PATIENT
  Weight: 52 kg

DRUGS (1)
  1. ALEVE (CAPLET) [Suspect]
     Indication: ARTHRITIS
     Dosage: 2 TABLETS TWICE DAILY - 50 COUNT
     Route: 048
     Dates: start: 20120101, end: 20120401

REACTIONS (1)
  - ABDOMINAL DISCOMFORT [None]
